FAERS Safety Report 10040755 (Version 1)
Quarter: 2014Q1

REPORT INFORMATION
  Report Type: Report from Study
  Country: US (occurrence: US)
  Receive Date: 20140327
  Receipt Date: 20140327
  Transmission Date: 20141002
  Serious: Yes (Disabling, Other)
  Sender: FDA-Public Use
  Company Number: US-ALEXION PHARMACEUTICALS INC.-A201002010

PATIENT
  Sex: 0

DRUGS (2)
  1. SOLIRIS [Suspect]
     Indication: PAROXYSMAL NOCTURNAL HAEMOGLOBINURIA
     Dosage: UNK
     Route: 042
  2. DILAUDID [Concomitant]
     Indication: OSTEOARTHRITIS
     Dosage: UNK

REACTIONS (5)
  - Transfusion [Unknown]
  - Osteoarthritis [Unknown]
  - Fatigue [Unknown]
  - Haemoglobin decreased [Unknown]
  - Joint effusion [Unknown]
